FAERS Safety Report 11306233 (Version 5)
Quarter: 2016Q1

REPORT INFORMATION
  Report Type: Spontaneous
  Country: BR (occurrence: BR)
  Receive Date: 20150723
  Receipt Date: 20160119
  Transmission Date: 20160525
  Serious: Yes (Hospitalization, Other)
  Sender: FDA-Public Use
  Company Number: BR-PFIZER INC-2015075033

PATIENT
  Age: 54 Year
  Sex: Male
  Weight: 125 kg

DRUGS (5)
  1. SUTENT [Suspect]
     Active Substance: SUNITINIB MALATE
     Indication: METASTATIC RENAL CELL CARCINOMA
     Dosage: 50 MG, CYCLE 2 PER 1
     Route: 048
     Dates: start: 20140623, end: 201509
  2. SUTENT [Suspect]
     Active Substance: SUNITINIB MALATE
     Dosage: 37.5 MG (1 CAPSULE OF 25 MG PLUS 1 CAPSULE OF 12.5 MG)
     Route: 048
     Dates: start: 201502
  3. SUTENT [Suspect]
     Active Substance: SUNITINIB MALATE
     Dosage: UNK
  4. SUTENT [Suspect]
     Active Substance: SUNITINIB MALATE
     Dosage: UNK
  5. SUTENT [Suspect]
     Active Substance: SUNITINIB MALATE
     Dosage: UNK

REACTIONS (24)
  - Erysipelas [Recovered/Resolved]
  - Hypophagia [Unknown]
  - Eye swelling [Not Recovered/Not Resolved]
  - Hypertension [Recovered/Resolved]
  - Swelling face [Unknown]
  - Abdominal pain [Unknown]
  - Rash [Unknown]
  - Stomatitis [Not Recovered/Not Resolved]
  - Pharyngeal inflammation [Not Recovered/Not Resolved]
  - Yellow skin [Unknown]
  - Liver disorder [Unknown]
  - Wound secretion [Unknown]
  - Genital rash [Unknown]
  - Malaise [Not Recovered/Not Resolved]
  - Feeling abnormal [Unknown]
  - Nausea [Recovered/Resolved]
  - Wound [Not Recovered/Not Resolved]
  - Diarrhoea [Not Recovered/Not Resolved]
  - Weight decreased [Unknown]
  - Skin exfoliation [Unknown]
  - Rash macular [Not Recovered/Not Resolved]
  - Pruritus [Not Recovered/Not Resolved]
  - Peripheral swelling [Not Recovered/Not Resolved]
  - Fluid retention [Unknown]
